FAERS Safety Report 6290910-5 (Version None)
Quarter: 2009Q3

REPORT INFORMATION
  Report Type: 
  Country: None (occurrence: None)
  Receive Date: 20090730
  Receipt Date: 20090721
  Transmission Date: 20100115
  Serious: Yes (Other)
  Sender: FDA-Public Use
  Company Number: PHEH2009US07364

PATIENT
  Sex: Male

DRUGS (14)
  1. ZOMETA [Suspect]
     Indication: MULTIPLE MYELOMA
     Dosage: 4 MG, QMO
     Dates: start: 20011105, end: 20011021
  2. ZOMETA [Suspect]
     Dosage: 4 MG, QMO
     Dates: start: 20020109, end: 20021021
  3. ZOMETA [Suspect]
     Dosage: 4 MG, QMO
     Dates: start: 20030707, end: 20031229
  4. ZOMETA [Suspect]
     Dosage: 4 MG, ONCE/SINGLE
     Dates: start: 20050105, end: 20050105
  5. ZOMETA [Suspect]
     Dosage: 4 MG, ONCE/SINGLE
     Dates: start: 20050307, end: 20050307
  6. ZOMETA [Suspect]
     Dosage: 4 MG, ONCE/SINGLE
     Dates: start: 20050404, end: 20050404
  7. AREDIA [Suspect]
     Dosage: 90 MG, QMO
     Dates: start: 19991027, end: 20011003
  8. AREDIA [Suspect]
     Dosage: 90 MG, QMO
     Dates: start: 20040209, end: 20041206
  9. THALIDOMIDE [Concomitant]
     Dosage: UNK
     Dates: start: 19990101, end: 20040101
  10. POTASSIUM CHLORIDE [Concomitant]
  11. FLOMAX [Concomitant]
  12. PROSCAR [Concomitant]
  13. DECADRON                                /CAN/ [Concomitant]
     Dosage: UNK
     Dates: start: 19990101, end: 20040101
  14. BIAXIN [Concomitant]
     Dosage: 500 MG, BID
     Dates: start: 19990101, end: 20040101

REACTIONS (4)
  - BONE DISORDER [None]
  - CEREBROVASCULAR ACCIDENT [None]
  - INFECTION [None]
  - OSTEONECROSIS [None]
